FAERS Safety Report 15607832 (Version 4)
Quarter: 2019Q1

REPORT INFORMATION
  Report Type: Spontaneous
  Country: BE (occurrence: BE)
  Receive Date: 20181112
  Receipt Date: 20190125
  Transmission Date: 20190417
  Serious: Yes (Hospitalization, Other)
  Sender: FDA-Public Use
  Company Number: BE-FERRINGPH-2018FE06342

PATIENT

DRUGS (6)
  1. LYSOMUCIL [Concomitant]
     Active Substance: ACETYLCYSTEINE
  2. BOTOX [Concomitant]
     Active Substance: ONABOTULINUMTOXINA
     Indication: MUSCLE RELAXANT THERAPY
     Dosage: UNK
     Dates: start: 201804, end: 20180828
  3. FIRMAGON [Suspect]
     Active Substance: DEGARELIX ACETATE
     Indication: PROSTATE CANCER
     Dosage: 80 MG, MONTHLY
     Route: 065
     Dates: start: 201511
  4. ESOMEPRAZOLE. [Concomitant]
     Active Substance: ESOMEPRAZOLE MAGNESIUM
  5. ASPEGIC                            /00002701/ [Concomitant]
     Active Substance: ASPIRIN
  6. XGEVA [Concomitant]
     Active Substance: DENOSUMAB
     Indication: METASTASES TO BONE
     Dosage: UNK
     Dates: start: 201511

REACTIONS (11)
  - Loss of consciousness [Unknown]
  - Anal incontinence [Unknown]
  - Retching [Unknown]
  - Pain in extremity [Recovered/Resolved]
  - Pneumonia [Unknown]
  - Asthenia [Recovered/Resolved]
  - Hypotension [Unknown]
  - Prostatic specific antigen increased [Unknown]
  - Urinary incontinence [Unknown]
  - Loss of consciousness [Unknown]
  - Injection site erythema [Unknown]

NARRATIVE: CASE EVENT DATE: 201806
